FAERS Safety Report 5893341-2 (Version None)
Quarter: 2008Q3

REPORT INFORMATION
  Report Type: 
  Country: None (occurrence: None)
  Receive Date: 20080922
  Receipt Date: 20080922
  Transmission Date: 20090109
  Serious: Yes (Hospitalization)
  Sender: FDA-Public Use
  Company Number: None

PATIENT
  Age: 57 Year
  Sex: Female
  Weight: 56.6996 kg

DRUGS (1)
  1. CLINDAMYCIN  UNKNOWN, EITHER 150 OR 300 MG  RANBAXY [Suspect]
     Indication: ORAL INFECTION
     Dosage: 4 X /DAY  PO
     Route: 048
     Dates: start: 20080912, end: 20080914

REACTIONS (1)
  - OESOPHAGITIS [None]
